FAERS Safety Report 6632320-4 (Version None)
Quarter: 2010Q1

REPORT INFORMATION
  Report Type: 
  Country: None (occurrence: None)
  Receive Date: 20100312
  Receipt Date: 20100310
  Transmission Date: 20100710
  Serious: Yes (Life-Threatening)
  Sender: FDA-Public Use
  Company Number: B0636385A

PATIENT
  Sex: Male
  Weight: 10.1 kg

DRUGS (5)
  1. FOSAMPRENAVIR [Suspect]
     Indication: HIV INFECTION
     Dosage: 9ML TWICE PER DAY
     Dates: start: 20090617
  2. RITONAVIR [Suspect]
     Indication: HIV INFECTION
     Dosage: .9ML TWICE PER DAY
     Dates: start: 20090617
  3. DAPSONE [Concomitant]
     Indication: PROPHYLAXIS
     Dosage: 10MG PER DAY
     Route: 048
     Dates: start: 20090914
  4. ABACAVIR [Concomitant]
     Indication: ANTIRETROVIRAL THERAPY
     Dosage: 4ML TWICE PER DAY
     Route: 048
     Dates: start: 20090617
  5. 3TC [Concomitant]
     Indication: ANTIRETROVIRAL THERAPY
     Dosage: 4ML TWICE PER DAY
     Route: 048
     Dates: start: 20090617

REACTIONS (8)
  - COUGH [None]
  - MALAISE [None]
  - NEUTROPENIA [None]
  - PHARYNGITIS [None]
  - PYREXIA [None]
  - RHINITIS [None]
  - UPPER RESPIRATORY TRACT INFECTION [None]
  - URINARY TRACT INFECTION [None]
